FAERS Safety Report 7654464-0 (Version None)
Quarter: 2011Q3

REPORT INFORMATION
  Report Type: 
  Country: None (occurrence: None)
  Receive Date: 20110803
  Receipt Date: 20110728
  Transmission Date: 20111222
  Serious: Yes (Hospitalization)
  Sender: FDA-Public Use
  Company Number: US-GENENTECH-322209

PATIENT
  Age: 80 Year
  Sex: Female
  Weight: 58.05 kg

DRUGS (1)
  1. RITUXAN [Suspect]
     Indication: CHRONIC LYMPHOCYTIC LEUKAEMIA
     Dosage: 10 MG/ML, 1/WEEK
     Route: 042
     Dates: start: 20110125

REACTIONS (1)
  - SKIN LESION [None]
